FAERS Safety Report 8599267-8 (Version None)
Quarter: 2012Q3

REPORT INFORMATION
  Report Type: 
  Country: None (occurrence: None)
  Receive Date: 20120816
  Receipt Date: 20120326
  Transmission Date: 20120928
  Serious: No
  Sender: FDA-Public Use
  Company Number: US-AMGEN-USASP2012019193

PATIENT

DRUGS (6)
  1. NEUPOGEN [Suspect]
     Indication: LEUKAEMIA
     Dosage: UNK
  2. NEULASTA [Suspect]
     Indication: LEUKAEMIA
     Dosage: UNK
  3. NEULASTA [Suspect]
  4. OXALIPLATIN [Concomitant]
  5. NEUPOGEN [Suspect]
  6. GEMCITABINE HYDROCHLORIDE [Concomitant]

REACTIONS (2)
  - DRUG INEFFECTIVE [None]
  - BLOOD COUNT ABNORMAL [None]
